FAERS Safety Report 8564171 (Version 3)
Quarter: 2013Q2

REPORT INFORMATION
  Report Type: Report from Study
  Country: AR (occurrence: AR)
  Receive Date: 20120516
  Receipt Date: 20130605
  Transmission Date: 20140414
  Serious: Yes (Other)
  Sender: FDA-Public Use
  Company Number: PHHY2012AR040657

PATIENT
  Age: 60 Year
  Sex: Female

DRUGS (2)
  1. GLIVEC [Suspect]
     Indication: CHRONIC MYELOID LEUKAEMIA
     Dosage: 400 MG, DAILY
     Route: 048
     Dates: start: 200711
  2. LEVOTHYROXINE [Concomitant]

REACTIONS (4)
  - Benign breast neoplasm [Recovered/Resolved]
  - Thyroid neoplasm [Not Recovered/Not Resolved]
  - Abdominal pain upper [Recovered/Resolved]
  - Muscle spasms [Not Recovered/Not Resolved]
